FAERS Safety Report 25810785 (Version 1)
Quarter: 2025Q3

REPORT INFORMATION
  Report Type: Spontaneous
  Country: CN (occurrence: CN)
  Receive Date: 20250917
  Receipt Date: 20250917
  Transmission Date: 20251021
  Serious: Yes (Hospitalization)
  Sender: BAXTER
  Company Number: None

PATIENT
  Age: 71 Year
  Sex: Female
  Weight: 50 kg

DRUGS (10)
  1. CYCLOPHOSPHAMIDE [Suspect]
     Active Substance: CYCLOPHOSPHAMIDE
     Indication: B-cell lymphoma
     Dosage: 1.1 G, QD, ROUTE: INTRAPUMP INJECTION
     Route: 065
     Dates: start: 20250901, end: 20250901
  2. SODIUM CHLORIDE [Suspect]
     Active Substance: SODIUM CHLORIDE
     Indication: Medication dilution
     Dosage: 250 ML, QD, 0.9% SODIUM CHLORIDE INJECTION
     Route: 041
     Dates: start: 2025, end: 2025
  3. RITUXIMAB [Suspect]
     Active Substance: RITUXIMAB
     Indication: B-cell lymphoma
     Dosage: 460 MG, QD, ROUTE: INTRAPUMP INJECTION
     Route: 065
     Dates: start: 20250831, end: 20250831
  4. VINDESINE SULFATE [Suspect]
     Active Substance: VINDESINE SULFATE
     Indication: B-cell lymphoma
     Dosage: 3 MG, QD
     Route: 041
     Dates: start: 20250901, end: 20250901
  5. DOXORUBICIN HYDROCHLORIDE [Suspect]
     Active Substance: DOXORUBICIN HYDROCHLORIDE
     Indication: B-cell lymphoma
     Dosage: 20 MG, QD, ROUTE: INTRAPUMP INJECTION
     Route: 065
     Dates: start: 20250901, end: 20250901
  6. SODIUM CHLORIDE [Suspect]
     Active Substance: SODIUM CHLORIDE
     Indication: Medication dilution
     Dosage: 460 ML, QD, ROUTE: INTRAPUMP INJECTION
     Route: 065
     Dates: start: 20250831, end: 20250831
  7. SODIUM CHLORIDE [Suspect]
     Active Substance: SODIUM CHLORIDE
     Dosage: 500 ML, QD, ROUTE: INTRAPUMP INJECTION
     Route: 065
     Dates: start: 20250901, end: 20250901
  8. SODIUM CHLORIDE [Suspect]
     Active Substance: SODIUM CHLORIDE
     Dosage: 100 ML, QD
     Route: 041
     Dates: start: 20250901, end: 20250901
  9. DEXTROSE [Suspect]
     Active Substance: DEXTROSE MONOHYDRATE
     Indication: Medication dilution
     Dosage: 250 ML, QD, ROUTE: INTRAPUMP INJECTION
     Route: 065
     Dates: start: 20250901, end: 20250901
  10. DEXAMETHASONE SODIUM PHOSPHATE [Concomitant]
     Active Substance: DEXAMETHASONE SODIUM PHOSPHATE
     Indication: B-cell lymphoma
     Dosage: 15 MG, QD
     Route: 041
     Dates: start: 20250901

REACTIONS (2)
  - White blood cell count decreased [Unknown]
  - Neutrophil count decreased [Unknown]

NARRATIVE: CASE EVENT DATE: 20250910
